FAERS Safety Report 7336308-X (Version None)
Quarter: 2011Q1

REPORT INFORMATION
  Report Type: 
  Country: None (occurrence: None)
  Receive Date: 20110307
  Receipt Date: 20110302
  Transmission Date: 20110831
  Serious: Yes (Other)
  Sender: FDA-Public Use
  Company Number: US-ABBOTT-11P-163-0708909-00

PATIENT
  Sex: Male

DRUGS (19)
  1. HYDROXYCHLOROQUINE [Concomitant]
     Indication: RHEUMATOID ARTHRITIS
  2. FOLIC ACID [Concomitant]
     Indication: PRODUCT USED FOR UNKNOWN INDICATION
  3. METHOTREXATE [Concomitant]
     Indication: PRODUCT USED FOR UNKNOWN INDICATION
     Dosage: 8 TABLETS WEEKLY
  4. ALLEGRA [Concomitant]
     Indication: HYPERSENSITIVITY
  5. FOSAMAX [Concomitant]
     Indication: PRODUCT USED FOR UNKNOWN INDICATION
  6. HUMIRA [Suspect]
     Indication: RHEUMATOID ARTHRITIS
     Dates: start: 20060101, end: 20090101
  7. HUMIRA [Suspect]
     Indication: ANKYLOSING SPONDYLITIS
     Dates: start: 20090101
  8. SIMVASTATIN [Concomitant]
     Indication: BLOOD CHOLESTEROL INCREASED
  9. HYDROCODONE [Concomitant]
     Indication: PAIN
     Dosage: 5-500 MILLIGRAMS AS NEEDED
  10. SULFASALAZINE [Concomitant]
     Indication: RHEUMATOID ARTHRITIS
     Dosage: 2 TABLETS BID
  11. DAYPRO [Concomitant]
     Indication: RHEUMATOID ARTHRITIS
  12. ALLEGRA [Concomitant]
     Indication: ASTHMA
  13. PREDNISONE [Concomitant]
     Indication: PRODUCT USED FOR UNKNOWN INDICATION
     Dates: end: 20110301
  14. MULTI-VITAMIN [Concomitant]
     Indication: PRODUCT USED FOR UNKNOWN INDICATION
  15. VITAMIN D [Concomitant]
     Indication: PRODUCT USED FOR UNKNOWN INDICATION
  16. ASMANEX TWISTHALER [Concomitant]
     Indication: PRODUCT USED FOR UNKNOWN INDICATION
  17. CYMBALTA [Concomitant]
     Indication: ARTHRALGIA
  18. ATENOLOL [Concomitant]
     Indication: HYPERTENSION
  19. AMEPROZOLE [Concomitant]
     Indication: GASTROOESOPHAGEAL REFLUX DISEASE

REACTIONS (12)
  - RESPIRATORY TRACT CONGESTION [None]
  - COUGH [None]
  - JOINT SWELLING [None]
  - NASAL CONGESTION [None]
  - CONTUSION [None]
  - ARTHRALGIA [None]
  - DRUG INEFFECTIVE [None]
  - OROPHARYNGEAL PAIN [None]
  - LIMB INJURY [None]
  - DYSPNOEA [None]
  - CARPAL TUNNEL SYNDROME [None]
  - FATIGUE [None]
